FAERS Safety Report 5255410-X (Version None)
Quarter: 2007Q1

REPORT INFORMATION
  Report Type: 
  Country: None (occurrence: None)
  Receive Date: 20070305
  Receipt Date: 20070212
  Transmission Date: 20070707
  Serious: Yes (Hospitalization, Other)
  Sender: FDA-Public Use
  Company Number: FR-MERCK-0612FRA00071

PATIENT
  Age: 57 Year
  Sex: Female

DRUGS (9)
  1. ZOCOR [Suspect]
     Indication: DYSLIPIDAEMIA
     Route: 048
     Dates: start: 19950101
  2. DOMPERIDONE [Suspect]
     Route: 048
     Dates: start: 20030101
  3. AVOCADO OIL AND SOYBEAN OIL [Suspect]
     Route: 048
     Dates: start: 20040101
  4. RABEPRAZOLE SODIUM [Suspect]
     Route: 048
     Dates: start: 20030101
  5. INDAPAMIDE [Suspect]
     Indication: HYPERTENSION
     Route: 048
     Dates: start: 19950101
  6. BROMAZEPAM [Suspect]
     Route: 048
     Dates: start: 20030101
  7. CLOPIDOGREL BISULFATE [Suspect]
     Route: 048
     Dates: start: 20030101
  8. ETHINYL ESTRADIOL AND GESTODENE [Suspect]
     Indication: CONTRACEPTION
     Route: 048
     Dates: start: 19890101, end: 20040101
  9. ETHINYL ESTRADIOL AND GESTODENE [Suspect]
     Route: 048
     Dates: start: 20040102

REACTIONS (3)
  - ANGIOPATHY [None]
  - CEREBROVASCULAR ACCIDENT [None]
  - MENIERE'S DISEASE [None]
